FAERS Safety Report 4916516-5 (Version None)
Quarter: 2006Q1

REPORT INFORMATION
  Report Type: 
  Country: None (occurrence: None)
  Receive Date: 20060220
  Receipt Date: 20060215
  Transmission Date: 20060701
  Serious: Yes (Other)
  Sender: FDA-Public Use
  Company Number: PHNR2006AU00537

PATIENT
  Age: 50 Year
  Sex: Male

DRUGS (1)
  1. ELIDEL [Suspect]

REACTIONS (1)
  - LYMPHOMA [None]
